FAERS Safety Report 9270937 (Version 2)
Quarter: 2013Q2

REPORT INFORMATION
  Report Type: Spontaneous
  Country: JP (occurrence: JP)
  Receive Date: 20130506
  Receipt Date: 20130520
  Transmission Date: 20140414
  Serious: Yes (Hospitalization)
  Sender: FDA-Public Use
  Company Number: JP-ROCHE-1212669

PATIENT
  Age: 5 Year
  Sex: Male
  Weight: 19 kg

DRUGS (3)
  1. TAMIFLU [Suspect]
     Indication: INFLUENZA
     Route: 048
     Dates: start: 20130403
  2. ASVERIN (TIPEPIDINE HIBENZATE) [Concomitant]
     Route: 048
     Dates: start: 20130403
  3. MUCODYNE [Concomitant]
     Route: 048
     Dates: start: 20130403

REACTIONS (5)
  - Hallucination [Recovered/Resolved]
  - Hallucination, visual [Recovered/Resolved]
  - Vomiting [Recovered/Resolved]
  - Pyrexia [Recovered/Resolved]
  - Nausea [Recovered/Resolved]
